FAERS Safety Report 9212941 (Version 1)
Quarter: 2013Q2

REPORT INFORMATION
  Report Type: Spontaneous
  Country: US (occurrence: None)
  Receive Date: 20130403
  Receipt Date: 20130403
  Transmission Date: 20140414
  Serious: Yes (Life-Threatening)
  Sender: FDA-Public Use
  Company Number: None

PATIENT
  Age: 53 Year
  Sex: Male
  Weight: 122.47 kg

DRUGS (1)
  1. JANUMET [Suspect]
     Indication: TYPE 2 DIABETES MELLITUS
     Dosage: ONE TAB
     Route: 048
     Dates: start: 20100114, end: 20130402

REACTIONS (3)
  - Product quality issue [None]
  - Blood glucose increased [None]
  - Drug ineffective [None]
